FAERS Safety Report 19489596 (Version 1)
Quarter: 2021Q3

REPORT INFORMATION
  Report Type: Spontaneous
  Country: US (occurrence: US)
  Receive Date: 20210704
  Receipt Date: 20210704
  Transmission Date: 20211014
  Serious: No
  Sender: FDA-Public Use
  Company Number: US-TEVA-2021-US-1929878

PATIENT
  Age: 60 Year
  Sex: Female
  Weight: 78.9 kg

DRUGS (3)
  1. REMODULIN [Suspect]
     Active Substance: TREPROSTINIL
     Dosage: 0.0221 G/KG (0.024ML/HR PUMP RATE)
     Route: 058
     Dates: start: 20210612
  2. TORASEMIDE [Suspect]
     Active Substance: TORSEMIDE
     Indication: FLUID RETENTION
     Route: 065
     Dates: start: 20210522
  3. REMODULIN [Suspect]
     Active Substance: TREPROSTINIL
     Indication: PULMONARY ARTERIAL HYPERTENSION
     Dosage: 0.0221 G/KG (0.024ML/HR PUMP RATE)
     Route: 058
     Dates: start: 20210522

REACTIONS (2)
  - Fluid retention [Unknown]
  - Gout [Unknown]

NARRATIVE: CASE EVENT DATE: 2021
